FAERS Safety Report 9854729 (Version 3)
Quarter: 2014Q1

REPORT INFORMATION
  Report Type: Spontaneous
  Country: US (occurrence: US)
  Receive Date: 20140130
  Receipt Date: 20140311
  Transmission Date: 20141002
  Serious: Yes (Hospitalization, Other)
  Sender: FDA-Public Use
  Company Number: US-ROCHE-1338671

PATIENT
  Age: 59 Year
  Sex: Female
  Weight: 126.21 kg

DRUGS (17)
  1. PEGASYS [Suspect]
     Indication: CHRONIC HEPATITIS C
     Route: 058
     Dates: start: 20131014, end: 201402
  2. RIBASPHERE [Suspect]
     Indication: CHRONIC HEPATITIS C
     Route: 048
     Dates: start: 20131014, end: 201402
  3. INCIVEK [Suspect]
     Indication: CHRONIC HEPATITIS C
     Route: 048
     Dates: start: 20131013
  4. INCIVEK [Suspect]
     Dosage: 3 PILLS TWICE A DAY
     Route: 048
     Dates: start: 20131020, end: 201401
  5. ROCEPHIN [Suspect]
     Indication: SEPSIS
     Route: 042
     Dates: start: 201401
  6. TAMIFLU [Suspect]
     Indication: INFLUENZA LIKE ILLNESS
     Dosage: ONE DOSE
     Route: 065
     Dates: start: 201401
  7. LASIX [Concomitant]
  8. NORVASC [Concomitant]
  9. METFORMIN [Concomitant]
  10. JANUVIA [Concomitant]
  11. PROAIR (UNITED STATES) [Concomitant]
     Indication: ASTHMA
     Route: 065
  12. KLOR-CON [Concomitant]
     Route: 048
  13. CRANBERRY EXTRACT [Concomitant]
     Route: 048
  14. HYDROMORPHONE [Concomitant]
  15. PROMETHAZINE [Concomitant]
  16. ROBAXIN [Concomitant]
  17. ALBUTEROL [Concomitant]

REACTIONS (53)
  - Urosepsis [Recovered/Resolved]
  - Anaemia [Recovered/Resolved]
  - Cystitis [Recovered/Resolved]
  - Hyponatraemia [Not Recovered/Not Resolved]
  - Hypochloraemia [Not Recovered/Not Resolved]
  - Blood urea increased [Not Recovered/Not Resolved]
  - Blood creatinine increased [Not Recovered/Not Resolved]
  - Sepsis [Recovering/Resolving]
  - Haemolytic anaemia [Unknown]
  - Sepsis [Unknown]
  - Cough [Not Recovered/Not Resolved]
  - Diarrhoea [Recovered/Resolved]
  - Pyrexia [Recovered/Resolved]
  - Glucose tolerance impaired [Unknown]
  - Rash [Recovered/Resolved]
  - Joint stiffness [Recovering/Resolving]
  - Urinary tract infection [Unknown]
  - Asthenia [Unknown]
  - Dizziness [Unknown]
  - Hypotension [Unknown]
  - Sinusitis [Unknown]
  - Flatulence [Unknown]
  - Weight decreased [Unknown]
  - Chills [Unknown]
  - Malaise [Unknown]
  - Paranasal sinus hypersecretion [Unknown]
  - Stomatitis [Recovering/Resolving]
  - Nasal ulcer [Recovering/Resolving]
  - Scab [Recovering/Resolving]
  - Decreased appetite [Unknown]
  - Decreased appetite [Recovering/Resolving]
  - Musculoskeletal pain [Unknown]
  - Back pain [Unknown]
  - Pain in extremity [Unknown]
  - Insomnia [Unknown]
  - Oedema peripheral [Unknown]
  - Fatigue [Unknown]
  - Dehydration [Unknown]
  - Joint swelling [Not Recovered/Not Resolved]
  - Local swelling [Not Recovered/Not Resolved]
  - Vein disorder [Not Recovered/Not Resolved]
  - Oedema peripheral [Unknown]
  - Haemorrhoids [Unknown]
  - Hypocalcaemia [Unknown]
  - Hot flush [Unknown]
  - Asthenia [Unknown]
  - Haemoglobin decreased [Unknown]
  - Bedridden [Unknown]
  - Arthralgia [Unknown]
  - Viral infection [Unknown]
  - Blood glucose increased [Unknown]
  - Blood glucose decreased [Unknown]
  - Immunodeficiency [Unknown]
